FAERS Safety Report 9280856 (Version 1)
Quarter: 2013Q2

REPORT INFORMATION
  Report Type: Spontaneous
  Country: US (occurrence: None)
  Receive Date: 20130508
  Receipt Date: 20130508
  Transmission Date: 20140414
  Serious: Yes (Life-Threatening, Hospitalization, Disabling)
  Sender: FDA-Public Use
  Company Number: None

PATIENT
  Age: 34 Year
  Sex: Female
  Weight: 92.08 kg

DRUGS (2)
  1. VIIBRYD [Suspect]
     Indication: DEPRESSION
     Route: 048
     Dates: start: 20130308, end: 20130407
  2. VIIBRYD [Suspect]
     Indication: ANXIETY
     Route: 048
     Dates: start: 20130308, end: 20130407

REACTIONS (9)
  - Muscle spasms [None]
  - Muscle spasms [None]
  - Hallucinations, mixed [None]
  - Convulsion [None]
  - Amnesia [None]
  - Coordination abnormal [None]
  - Fall [None]
  - Laceration [None]
  - Contusion [None]
